FAERS Safety Report 4494358-5 (Version None)
Quarter: 2004Q4

REPORT INFORMATION
  Report Type: 
  Country: None (occurrence: None)
  Receive Date: 20041102
  Receipt Date: 20041012
  Transmission Date: 20050328
  Serious: Yes (Other)
  Sender: FDA-Public Use
  Company Number: USA041081174

PATIENT
  Sex: Female

DRUGS (2)
  1. FORTEO [Suspect]
  2. DIOVAN HCT [Concomitant]

REACTIONS (1)
  - HYPERCALCAEMIA [None]
